FAERS Safety Report 4546685-0 (Version None)
Quarter: 2005Q1

REPORT INFORMATION
  Report Type: 
  Country: None (occurrence: None)
  Receive Date: 20050105
  Receipt Date: 20041220
  Transmission Date: 20050727
  Serious: No
  Sender: FDA-Public Use
  Company Number: 9557

PATIENT
  Age: 24 Month
  Sex: Female

DRUGS (20)
  1. METHOTREXATE [Suspect]
     Indication: JUVENILE ARTHRITIS
     Dosage: 5 MG WEEKLY/7.5 MG WEEKLY/10 MG WEEKLY/7.5 MG WEEKLY/7.5 MG WEEKLY/7.5 MG WEEKLY/10 MG WEEKLY/7.5 MG
     Dates: start: 19990401, end: 19990516
  2. METHOTREXATE [Suspect]
     Indication: UVEITIS
     Dosage: 5 MG WEEKLY/7.5 MG WEEKLY/10 MG WEEKLY/7.5 MG WEEKLY/7.5 MG WEEKLY/7.5 MG WEEKLY/10 MG WEEKLY/7.5 MG
     Dates: start: 19990401, end: 19990516
  3. METHOTREXATE [Suspect]
     Indication: JUVENILE ARTHRITIS
     Dosage: 5 MG WEEKLY/7.5 MG WEEKLY/10 MG WEEKLY/7.5 MG WEEKLY/7.5 MG WEEKLY/7.5 MG WEEKLY/10 MG WEEKLY/7.5 MG
     Dates: start: 19990517, end: 19990628
  4. METHOTREXATE [Suspect]
     Indication: UVEITIS
     Dosage: 5 MG WEEKLY/7.5 MG WEEKLY/10 MG WEEKLY/7.5 MG WEEKLY/7.5 MG WEEKLY/7.5 MG WEEKLY/10 MG WEEKLY/7.5 MG
     Dates: start: 19990517, end: 19990628
  5. METHOTREXATE [Suspect]
     Indication: JUVENILE ARTHRITIS
     Dosage: 5 MG WEEKLY/7.5 MG WEEKLY/10 MG WEEKLY/7.5 MG WEEKLY/7.5 MG WEEKLY/7.5 MG WEEKLY/10 MG WEEKLY/7.5 MG
     Dates: start: 19990629, end: 19990801
  6. METHOTREXATE [Suspect]
     Indication: UVEITIS
     Dosage: 5 MG WEEKLY/7.5 MG WEEKLY/10 MG WEEKLY/7.5 MG WEEKLY/7.5 MG WEEKLY/7.5 MG WEEKLY/10 MG WEEKLY/7.5 MG
     Dates: start: 19990629, end: 19990801
  7. METHOTREXATE [Suspect]
     Indication: JUVENILE ARTHRITIS
     Dosage: 5 MG WEEKLY/7.5 MG WEEKLY/10 MG WEEKLY/7.5 MG WEEKLY/7.5 MG WEEKLY/7.5 MG WEEKLY/10 MG WEEKLY/7.5 MG
     Dates: start: 19990801, end: 20000401
  8. METHOTREXATE [Suspect]
     Indication: UVEITIS
     Dosage: 5 MG WEEKLY/7.5 MG WEEKLY/10 MG WEEKLY/7.5 MG WEEKLY/7.5 MG WEEKLY/7.5 MG WEEKLY/10 MG WEEKLY/7.5 MG
     Dates: start: 19990801, end: 20000401
  9. METHOTREXATE [Suspect]
     Indication: JUVENILE ARTHRITIS
     Dosage: 5 MG WEEKLY/7.5 MG WEEKLY/10 MG WEEKLY/7.5 MG WEEKLY/7.5 MG WEEKLY/7.5 MG WEEKLY/10 MG WEEKLY/7.5 MG
     Dates: start: 20000502, end: 20000801
  10. METHOTREXATE [Suspect]
     Indication: UVEITIS
     Dosage: 5 MG WEEKLY/7.5 MG WEEKLY/10 MG WEEKLY/7.5 MG WEEKLY/7.5 MG WEEKLY/7.5 MG WEEKLY/10 MG WEEKLY/7.5 MG
     Dates: start: 20000502, end: 20000801
  11. METHOTREXATE [Suspect]
     Indication: JUVENILE ARTHRITIS
     Dosage: 5 MG WEEKLY/7.5 MG WEEKLY/10 MG WEEKLY/7.5 MG WEEKLY/7.5 MG WEEKLY/7.5 MG WEEKLY/10 MG WEEKLY/7.5 MG
     Dates: start: 20000801, end: 20000901
  12. METHOTREXATE [Suspect]
     Indication: UVEITIS
     Dosage: 5 MG WEEKLY/7.5 MG WEEKLY/10 MG WEEKLY/7.5 MG WEEKLY/7.5 MG WEEKLY/7.5 MG WEEKLY/10 MG WEEKLY/7.5 MG
     Dates: start: 20000801, end: 20000901
  13. METHOTREXATE [Suspect]
     Indication: JUVENILE ARTHRITIS
     Dosage: 5 MG WEEKLY/7.5 MG WEEKLY/10 MG WEEKLY/7.5 MG WEEKLY/7.5 MG WEEKLY/7.5 MG WEEKLY/10 MG WEEKLY/7.5 MG
     Dates: start: 20000901, end: 20020401
  14. METHOTREXATE [Suspect]
     Indication: UVEITIS
     Dosage: 5 MG WEEKLY/7.5 MG WEEKLY/10 MG WEEKLY/7.5 MG WEEKLY/7.5 MG WEEKLY/7.5 MG WEEKLY/10 MG WEEKLY/7.5 MG
     Dates: start: 20000901, end: 20020401
  15. METHOTREXATE [Suspect]
     Indication: JUVENILE ARTHRITIS
     Dosage: 5 MG WEEKLY/7.5 MG WEEKLY/10 MG WEEKLY/7.5 MG WEEKLY/7.5 MG WEEKLY/7.5 MG WEEKLY/10 MG WEEKLY/7.5 MG
     Dates: start: 20020401, end: 20020801
  16. METHOTREXATE [Suspect]
     Indication: UVEITIS
     Dosage: 5 MG WEEKLY/7.5 MG WEEKLY/10 MG WEEKLY/7.5 MG WEEKLY/7.5 MG WEEKLY/7.5 MG WEEKLY/10 MG WEEKLY/7.5 MG
     Dates: start: 20020401, end: 20020801
  17. ETANERCEPT [Concomitant]
  18. PIROXICAM [Concomitant]
  19. FOLIC ACID [Concomitant]
  20. PREDNISOLONE ACETATE [Concomitant]

REACTIONS (6)
  - ALANINE AMINOTRANSFERASE INCREASED [None]
  - ASPARTATE AMINOTRANSFERASE INCREASED [None]
  - EMOTIONAL DISTRESS [None]
  - LIVER FUNCTION TEST ABNORMAL [None]
  - STOMATITIS [None]
  - VOMITING [None]
